FAERS Safety Report 16123285 (Version 2)
Quarter: 2019Q2

REPORT INFORMATION
  Report Type: Report from Study
  Country: CO (occurrence: CO)
  Receive Date: 20190327
  Receipt Date: 20190410
  Transmission Date: 20190711
  Serious: Yes (Hospitalization)
  Sender: FDA-Public Use
  Company Number: PHHY2019CO032909

PATIENT
  Sex: Female
  Weight: 51 kg

DRUGS (5)
  1. JADENU [Suspect]
     Active Substance: DEFERASIROX
     Indication: THALASSAEMIA
     Dosage: 300 MG, QD
     Route: 048
     Dates: start: 201806
  2. HYDROXYUREA. [Concomitant]
     Active Substance: HYDROXYUREA
     Indication: ANAEMIA
     Dosage: 500 MG, QD (6 TIMES A DAY)
     Route: 048
  3. LEVETIRACETAM. [Concomitant]
     Active Substance: LEVETIRACETAM
     Indication: PRODUCT USED FOR UNKNOWN INDICATION
     Dosage: 1 MG, TID
     Route: 048
  4. JADENU [Suspect]
     Active Substance: DEFERASIROX
     Dosage: 360 MG, QD
     Route: 048
  5. FOLIC ACID. [Concomitant]
     Active Substance: FOLIC ACID
     Indication: ANAEMIA
     Dosage: 3 OF 1 MG, QD
     Route: 048

REACTIONS (3)
  - Cerebrovascular accident [Unknown]
  - Incorrect dose administered [Unknown]
  - Haemoglobin decreased [Recovering/Resolving]
